FAERS Safety Report 8077918-4 (Version None)
Quarter: 2012Q1

REPORT INFORMATION
  Report Type: 
  Country: None (occurrence: None)
  Receive Date: 20120127
  Receipt Date: 20110103
  Transmission Date: 20120608
  Serious: No
  Sender: FDA-Public Use
  Company Number: US-ABBOTT-11P-163-0695348-00

PATIENT
  Sex: Female
  Weight: 98.972 kg

DRUGS (7)
  1. SOMA [Concomitant]
     Indication: MIGRAINE
  2. FLEXERIL [Concomitant]
     Indication: PRODUCT USED FOR UNKNOWN INDICATION
     Dosage: AT NIGHT
  3. GLUCOSAMINE CHONDROITIN [Concomitant]
     Indication: ARTHRITIS
  4. FOLIC ACID [Concomitant]
     Indication: PRODUCT USED FOR UNKNOWN INDICATION
  5. LYSINE [Concomitant]
     Indication: ORAL HERPES
     Route: 061
  6. HUMIRA [Suspect]
     Indication: RHEUMATOID ARTHRITIS
     Dates: start: 20060101
  7. CITALOPRAM HYDROBROMIDE [Concomitant]
     Indication: PRODUCT USED FOR UNKNOWN INDICATION

REACTIONS (6)
  - RADIUS FRACTURE [None]
  - COUGH [None]
  - UPPER-AIRWAY COUGH SYNDROME [None]
  - PAIN IN EXTREMITY [None]
  - FALL [None]
  - ANIMAL BITE [None]
